FAERS Safety Report 7129597-8 (Version None)
Quarter: 2010Q4

REPORT INFORMATION
  Report Type: 
  Country: None (occurrence: None)
  Receive Date: 20101130
  Receipt Date: 20101116
  Transmission Date: 20110411
  Serious: Yes (Hospitalization, Other)
  Sender: FDA-Public Use
  Company Number: DE-MYLANLABS-2009S1003444

PATIENT
  Age: 83 Year
  Sex: Male
  Weight: 76 kg

DRUGS (11)
  1. FUROSEMIDE [Suspect]
     Indication: HYPERTENSION
     Route: 048
     Dates: end: 20080305
  2. FUROSEMIDE [Suspect]
     Route: 048
     Dates: start: 20080312
  3. SPIRONOLACTONE [Suspect]
     Indication: CARDIAC FAILURE
     Route: 048
     Dates: start: 20060201, end: 20080305
  4. SPIRONOLACTONE [Suspect]
     Route: 048
     Dates: start: 20080312
  5. TORSEMIDE [Suspect]
     Indication: HYPERTENSION
     Route: 048
     Dates: start: 20080201, end: 20080305
  6. XIPAMID BETA [Suspect]
     Indication: HYPERTENSION
     Route: 048
     Dates: start: 20060201, end: 20080305
  7. ACTRAPID [Concomitant]
     Indication: TYPE 2 DIABETES MELLITUS
     Route: 058
  8. DIGITOXIN [Concomitant]
     Indication: TACHYARRHYTHMIA
     Route: 048
     Dates: start: 20040101
  9. FALITHROM [Concomitant]
     Indication: ATRIAL FIBRILLATION
     Route: 048
     Dates: start: 20040101, end: 20080305
  10. PENTAERYTHRITOL TETRANITRATE [Concomitant]
     Indication: ANGINA PECTORIS
     Route: 048
  11. RAMIPRIL [Concomitant]
     Indication: HYPERTENSION
     Route: 048
     Dates: start: 20000101

REACTIONS (1)
  - DEHYDRATION [None]
